FAERS Safety Report 4929600-7 (Version None)
Quarter: 2006Q1

REPORT INFORMATION
  Report Type: 
  Country: None (occurrence: None)
  Receive Date: 20060223
  Receipt Date: 20060210
  Transmission Date: 20060701
  Serious: Yes (Death, Hospitalization, Other)
  Sender: FDA-Public Use
  Company Number: USA-2005-0020545

PATIENT
  Age: 39 Year
  Sex: Female
  Weight: 91.2 kg

DRUGS (11)
  1. OXYCONTIN [Suspect]
     Indication: PAIN
  2. OXYCODONE HCL [Suspect]
     Indication: PAIN
  3. HYDROCODONE BITARTRATE [Suspect]
     Indication: PAIN
  4. DIAZEPAM [Suspect]
  5. METHORPHAN (METHORPHAN) [Suspect]
  6. PAROXETINE HCL [Suspect]
  7. TRAZODONE HCL [Suspect]
  8. EPHEDRINE SUL CAP [Suspect]
  9. PSEUDOEPHEDRINE HCL [Suspect]
  10. TRILEPTAL [Suspect]
  11. NEURONTIN [Concomitant]

REACTIONS (10)
  - ADRENAL MASS [None]
  - CONVULSION [None]
  - DEPRESSION [None]
  - DRUG DEPENDENCE [None]
  - LIVIDITY [None]
  - LOSS OF CONSCIOUSNESS [None]
  - OVERDOSE [None]
  - PULMONARY OEDEMA [None]
  - SYNCOPE [None]
  - THERAPEUTIC AGENT TOXICITY [None]
